FAERS Safety Report 9995796 (Version 1)
Quarter: 2014Q1

REPORT INFORMATION
  Report Type: Spontaneous
  Country: US (occurrence: None)
  Receive Date: 20140310
  Receipt Date: 20140310
  Transmission Date: 20141002
  Serious: Yes (Hospitalization)
  Sender: FDA-Public Use
  Company Number: None

PATIENT
  Age: 64 Year
  Sex: Female
  Weight: 39.8 kg

DRUGS (4)
  1. KADCYLA [Suspect]
     Indication: BREAST CANCER METASTATIC
     Dosage: 156.2 MG  EVERY 21 DAYS  INTRAVENOUS
     Route: 042
     Dates: start: 20140219, end: 20140219
  2. TRAMADOL [Concomitant]
  3. PROCHLORPERAZINE [Concomitant]
  4. MORPHINE [Concomitant]

REACTIONS (3)
  - Posterior reversible encephalopathy syndrome [None]
  - Blindness [None]
  - Grand mal convulsion [None]
